FAERS Safety Report 7829128-0 (Version None)
Quarter: 2011Q4

REPORT INFORMATION
  Report Type: 
  Country: None (occurrence: None)
  Receive Date: 20111020
  Receipt Date: 20111011
  Transmission Date: 20120403
  Serious: Yes (Other)
  Sender: FDA-Public Use
  Company Number: PHHY2011JP90329

PATIENT
  Age: 72 Year
  Sex: Female

DRUGS (3)
  1. FAMVIR [Suspect]
     Indication: HERPES ZOSTER
     Dosage: 1500 MG DAILY (500 MG, TID)
     Route: 048
  2. TRAMADOL HYDROCHLORIDE/ACETAMINOPHEN [Concomitant]
     Route: 048
  3. XYZAL [Concomitant]
     Route: 048

REACTIONS (2)
  - LOSS OF CONSCIOUSNESS [None]
  - BLOOD PRESSURE DECREASED [None]
